FAERS Safety Report 11310652 (Version 2)
Quarter: 2015Q3

REPORT INFORMATION
  Report Type: Spontaneous
  Country: JP (occurrence: JP)
  Receive Date: 20150725
  Receipt Date: 20150818
  Transmission Date: 20151125
  Serious: Yes (Other)
  Sender: FDA-Public Use
  Company Number: JP-009507513-1507JPN008808

PATIENT
  Age: 9 Day
  Sex: Male

DRUGS (4)
  1. DEXTROSE. [Concomitant]
     Active Substance: DEXTROSE
     Indication: HYPOGLYCAEMIA
     Dosage: DAILY DOSE UNKNOWN, MAXIMUM GIR 20 MG/KG/MIN
     Route: 041
  2. HYDROCORTISONE. [Concomitant]
     Active Substance: HYDROCORTISONE
     Dosage: UNKNOWN
     Route: 065
  3. DIAZOXIDE CAPSULES 25 MG ^MSD^ [Suspect]
     Active Substance: DIAZOXIDE
     Dosage: 10 MG/KG, DAILY, (DIVIDED DOSE FREQUENCY UNKNOWN)
     Route: 048
  4. DIAZOXIDE CAPSULES 25 MG ^MSD^ [Suspect]
     Active Substance: DIAZOXIDE
     Indication: HYPOGLYCAEMIA
     Dosage: 20 MG/KG, DAILY, (DIVIDED DOSE FREQUENCY UNKNOWN)
     Route: 048

REACTIONS (4)
  - Oedema [Recovering/Resolving]
  - Anuria [Unknown]
  - Acidosis [Unknown]
  - Respiratory failure [Unknown]
